FAERS Safety Report 14288520 (Version 1)
Quarter: 2017Q4

REPORT INFORMATION
  Report Type: Report from Study
  Country: CA (occurrence: CA)
  Receive Date: 20171215
  Receipt Date: 20171215
  Transmission Date: 20180321
  Serious: Yes (Hospitalization, Other)
  Sender: FDA-Public Use
  Company Number: CA-TAKEDA-2017TUS025843

PATIENT
  Age: 87 Year
  Sex: Female

DRUGS (15)
  1. VEDOLIZUMAB [Suspect]
     Active Substance: VEDOLIZUMAB
     Indication: COLITIS ULCERATIVE
     Dosage: 300 MG, UNK
     Route: 042
     Dates: start: 20150926
  2. JAMP CALCIUM [Concomitant]
     Dosage: 500 MG, QD
  3. JAMP K20 [Concomitant]
     Dosage: 20 MMOL, UNK
  4. APO-OXAZEPAM [Concomitant]
     Active Substance: OXAZEPAM
     Dosage: 15 MG, UNK
  5. TOLOXIN                            /00017701/ [Concomitant]
     Dosage: 0.125 MG, UNK
  6. AMLODIPINE [Concomitant]
     Active Substance: AMLODIPINE BESYLATE
     Dosage: UNK
  7. PANTOPRAZOLE [Concomitant]
     Active Substance: PANTOPRAZOLE
     Dosage: 40 MG, UNK
  8. PRESERVISION AREDS [Concomitant]
     Active Substance: MINERALS\VITAMINS
     Dosage: UNK UNK, BID
  9. TARO-WARFARIN [Concomitant]
     Active Substance: WARFARIN
     Dosage: 2 MG, UNK
  10. JAMP VITAMIN D [Concomitant]
     Dosage: UNK
  11. REFRESH CELLUVISC [Concomitant]
     Active Substance: CARBOXYMETHYLCELLULOSE SODIUM
     Dosage: UNK UNK, QID
  12. APO-METOPROLOL (TYPE L) [Concomitant]
     Dosage: 50 MG, UNK
  13. NOVO-SEMIDE [Concomitant]
     Dosage: 20 MG, QD
  14. ALENDRONATE [Concomitant]
     Active Substance: ALENDRONATE SODIUM
     Dosage: 70 MG, UNK
  15. SALOFALK                           /00000301/ [Concomitant]
     Active Substance: MESALAMINE
     Dosage: 500 MG, UNK

REACTIONS (3)
  - Head injury [Unknown]
  - Face injury [Unknown]
  - Haemorrhage intracranial [Unknown]

NARRATIVE: CASE EVENT DATE: 201712
